FAERS Safety Report 11098735 (Version 2)
Quarter: 2015Q3

REPORT INFORMATION
  Report Type: Spontaneous
  Country: US (occurrence: US)
  Receive Date: 20150507
  Receipt Date: 20150915
  Transmission Date: 20151125
  Serious: Yes (Hospitalization)
  Sender: FDA-Public Use
  Company Number: US-ALLERGAN-1508411US

PATIENT
  Age: 51 Year
  Sex: Female
  Weight: 56.7 kg

DRUGS (3)
  1. JUVEDERM [Suspect]
     Active Substance: HYALURONIC ACID
     Dosage: UNK, SINGLE
     Dates: start: 20130911, end: 20130911
  2. BOTOX [Suspect]
     Active Substance: ONABOTULINUMTOXINA
     Indication: PRODUCT USED FOR UNKNOWN INDICATION
     Dosage: UNK, SINGLE
     Route: 030
     Dates: start: 20150211, end: 20150211
  3. JUVEDERM [Suspect]
     Active Substance: HYALURONIC ACID
     Indication: PRODUCT USED FOR UNKNOWN INDICATION
     Dosage: UNK, SINGLE
     Dates: start: 2014, end: 2014

REACTIONS (13)
  - White blood cell count decreased [Unknown]
  - Lymphocyte percentage decreased [Recovered/Resolved]
  - Red blood cell count decreased [Unknown]
  - Injection site cellulitis [Recovering/Resolving]
  - Injection site abscess [Recovering/Resolving]
  - Staphylococcal infection [Recovering/Resolving]
  - Nephrolithiasis [Unknown]
  - Blood glucose increased [Recovered/Resolved]
  - Injection site cellulitis [Recovering/Resolving]
  - Injection site abscess [Recovering/Resolving]
  - Neutrophil percentage increased [Recovered/Resolved]
  - Anion gap decreased [Recovered/Resolved]
  - Anion gap increased [Unknown]

NARRATIVE: CASE EVENT DATE: 20150214
